FAERS Safety Report 6130292-2 (Version None)
Quarter: 2009Q1

REPORT INFORMATION
  Report Type: 
  Country: None (occurrence: None)
  Receive Date: 20090324
  Receipt Date: 20090312
  Transmission Date: 20090719
  Serious: Yes (Hospitalization, Disabling)
  Sender: FDA-Public Use
  Company Number: GB-PFIZER INC-2009183128

PATIENT

DRUGS (3)
  1. PREGABALIN [Suspect]
     Indication: ANXIETY
     Dosage: EVERYDAY
     Route: 048
     Dates: start: 20090203, end: 20090213
  2. BUSPIRONE [Concomitant]
     Indication: DEPRESSION
     Route: 048
     Dates: start: 20081215, end: 20090201
  3. DULOXETINE HYDROCHLORIDE [Concomitant]
     Indication: DEPRESSION
     Route: 048
     Dates: start: 20081215, end: 20090201

REACTIONS (3)
  - ATAXIA [None]
  - LOSS OF CONSCIOUSNESS [None]
  - PANIC ATTACK [None]
